FAERS Safety Report 17412119 (Version 1)
Quarter: 2020Q1

REPORT INFORMATION
  Report Type: Spontaneous
  Country: HU (occurrence: HU)
  Receive Date: 20200213
  Receipt Date: 20200213
  Transmission Date: 20200409
  Serious: Yes (Hospitalization, Other)
  Sender: FDA-Public Use
  Company Number: HU-TEVA-2020-HU-1182892

PATIENT
  Sex: Female

DRUGS (1)
  1. LEVOXA [Suspect]
     Active Substance: LEVOFLOXACIN
     Indication: SINUSITIS
     Route: 048

REACTIONS (7)
  - Dysphagia [Not Recovered/Not Resolved]
  - Fatigue [Not Recovered/Not Resolved]
  - Motor dysfunction [Not Recovered/Not Resolved]
  - Cranial nerve disorder [Not Recovered/Not Resolved]
  - Dysphonia [Not Recovered/Not Resolved]
  - Speech disorder [Not Recovered/Not Resolved]
  - Vocal cord disorder [Not Recovered/Not Resolved]

NARRATIVE: CASE EVENT DATE: 2020
